FAERS Safety Report 5356531-3 (Version None)
Quarter: 2007Q2

REPORT INFORMATION
  Report Type: 
  Country: None (occurrence: None)
  Receive Date: 20070530
  Receipt Date: 20061206
  Transmission Date: 20071010
  Serious: Yes (Other)
  Sender: FDA-Public Use
  Company Number: US200608006524

PATIENT
  Age: 51 Year
  Sex: Female
  Weight: 72.6 kg

DRUGS (5)
  1. ZYPREXA [Suspect]
     Dosage: 10 MG
     Dates: start: 19990928, end: 20020322
  2. HALDOL SOLUTAB [Concomitant]
  3. DEPAKOTE [Concomitant]
  4. WELLBUTRIN [Concomitant]
  5. PAXIL [Concomitant]

REACTIONS (3)
  - DIABETES MELLITUS [None]
  - DIABETIC COMA [None]
  - METABOLIC DISORDER [None]
